FAERS Safety Report 20623485 (Version 4)
Quarter: 2022Q2

REPORT INFORMATION
  Report Type: Spontaneous
  Country: US (occurrence: None)
  Receive Date: 20220322
  Receipt Date: 20220520
  Transmission Date: 20220721
  Serious: No
  Sender: FDA-Public Use
  Company Number: 2022A085549

PATIENT
  Age: 28934 Day
  Sex: Female
  Weight: 52.2 kg

DRUGS (1)
  1. BYDUREON BCISE [Suspect]
     Active Substance: EXENATIDE
     Indication: Type 2 diabetes mellitus
     Route: 058
     Dates: start: 2021

REACTIONS (7)
  - Injection site mass [Recovering/Resolving]
  - Injection site injury [Unknown]
  - Weight decreased [Unknown]
  - Injection site pain [Unknown]
  - Incorrect dose administered [Unknown]
  - Device leakage [Unknown]
  - Needle issue [Unknown]

NARRATIVE: CASE EVENT DATE: 20220223
